FAERS Safety Report 5766146-0 (Version None)
Quarter: 2008Q2

REPORT INFORMATION
  Report Type: 
  Country: None (occurrence: None)
  Receive Date: 20080611
  Receipt Date: 20080530
  Transmission Date: 20081010
  Serious: Yes (Other)
  Sender: FDA-Public Use
  Company Number: AU-PFIZER INC-2008047588

PATIENT
  Age: 37 Year
  Sex: Female

DRUGS (2)
  1. CHANTIX [Suspect]
     Indication: SMOKING CESSATION THERAPY
     Dates: start: 20080501, end: 20080515
  2. EFFEXOR XR [Concomitant]

REACTIONS (3)
  - GLOSSITIS [None]
  - LIP SWELLING [None]
  - SWOLLEN TONGUE [None]
